FAERS Safety Report 8817663 (Version 3)
Quarter: 2013Q2

REPORT INFORMATION
  Report Type: Report from Study
  Country: AU (occurrence: AU)
  Receive Date: 20121001
  Receipt Date: 20130617
  Transmission Date: 20140414
  Serious: No
  Sender: FDA-Public Use
  Company Number: PHHY2012AU084544

PATIENT
  Sex: Female

DRUGS (6)
  1. SANDOSTATIN LAR [Suspect]
     Indication: CARCINOID SYNDROME
     Dosage: 30 MG, UNK
     Route: 030
  2. SANDOSTATIN LAR [Suspect]
     Dosage: 30 MG, UNK
     Route: 030
     Dates: start: 20120927
  3. SANDOSTATIN LAR [Suspect]
     Dosage: 30 MG, UNK
     Route: 030
  4. SANDOSTATIN LAR [Suspect]
     Dosage: 30 MG, UNK
     Route: 030
  5. SANDOSTATIN LAR [Suspect]
     Dosage: 30 MG, UNK
     Route: 030
  6. SANDOSTATIN LAR [Suspect]
     Dosage: 30 MG, UNK
     Route: 030

REACTIONS (1)
  - Needle issue [Not Recovered/Not Resolved]
